FAERS Safety Report 7088454-6 (Version None)
Quarter: 2010Q4

REPORT INFORMATION
  Report Type: 
  Country: None (occurrence: None)
  Receive Date: 20101108
  Receipt Date: 20101102
  Transmission Date: 20110411
  Serious: Yes (Hospitalization, Other)
  Sender: FDA-Public Use
  Company Number: US-PFIZER INC-2010109053

PATIENT
  Age: 74 Year
  Sex: Female

DRUGS (5)
  1. SUTENT [Suspect]
     Indication: GASTROINTESTINAL STROMAL TUMOUR
     Dosage: 37.5 MG, 1X/DAY
  2. MONTELUKAST SODIUM [Concomitant]
  3. PRILOSEC [Concomitant]
  4. PROZAC [Concomitant]
     Dosage: 20 MG, 1X/DAY
  5. ALENDRONATE SODIUM [Concomitant]
     Dosage: 70 MG, WEEKLY

REACTIONS (10)
  - ABDOMINAL DISTENSION [None]
  - ANAEMIA [None]
  - ASCITES [None]
  - DEEP VEIN THROMBOSIS [None]
  - DIARRHOEA [None]
  - FATIGUE [None]
  - HYPERTENSION [None]
  - LEUKOPENIA [None]
  - THYROIDITIS [None]
  - TRANSIENT ISCHAEMIC ATTACK [None]
